FAERS Safety Report 13462386 (Version 14)
Quarter: 2025Q1

REPORT INFORMATION
  Report Type: Spontaneous
  Country: US (occurrence: None)
  Receive Date: 20170420
  Receipt Date: 20250312
  Transmission Date: 20250408
  Serious: No
  Sender: INCYTE
  Company Number: US-INCYTE CORPORATION-2017IN001989

PATIENT
  Age: 41 Year

DRUGS (32)
  1. JAKAFI [Suspect]
     Active Substance: RUXOLITINIB
     Indication: Myelofibrosis
     Dosage: 15 MG, BID
  2. JAKAFI [Suspect]
     Active Substance: RUXOLITINIB
     Indication: Polycythaemia vera
  3. JAKAFI [Suspect]
     Active Substance: RUXOLITINIB
     Dosage: 15 MG IN THE MORNING AND 15 MG AT NIGHT
  4. JAKAFI [Suspect]
     Active Substance: RUXOLITINIB
     Dosage: 15 MG, BID
  5. JAKAFI [Suspect]
     Active Substance: RUXOLITINIB
     Dosage: 15 MG, BID
  6. JAKAFI [Suspect]
     Active Substance: RUXOLITINIB
     Dosage: 15 MG, BID
  7. JAKAFI [Suspect]
     Active Substance: RUXOLITINIB
     Dosage: 20 MG, BID
  8. JAKAFI [Suspect]
     Active Substance: RUXOLITINIB
  9. JAKAFI [Suspect]
     Active Substance: RUXOLITINIB
  10. JAKAFI [Suspect]
     Active Substance: RUXOLITINIB
     Route: 065
  11. JAKAFI [Suspect]
     Active Substance: RUXOLITINIB
     Route: 065
  12. JAKAFI [Suspect]
     Active Substance: RUXOLITINIB
     Dosage: 20 MILLIGRAM, BID
  13. HYDROCODONE [Suspect]
     Active Substance: HYDROCODONE
     Indication: Post herpetic neuralgia
     Route: 065
  14. ASPIRIN [Concomitant]
     Active Substance: ASPIRIN
     Indication: Product used for unknown indication
     Route: 065
  15. CITALOPRAM [Concomitant]
     Active Substance: CITALOPRAM
     Indication: Product used for unknown indication
     Route: 065
  16. CLONAZEPAM [Concomitant]
     Active Substance: CLONAZEPAM
     Indication: Product used for unknown indication
     Dosage: 2 MILLIGRAM, QPM
     Route: 065
  17. DIPHENHYDRAMINE [Concomitant]
     Active Substance: DIPHENHYDRAMINE
     Indication: Product used for unknown indication
     Route: 065
  18. IBUPROFEN [Concomitant]
     Active Substance: IBUPROFEN
     Indication: Product used for unknown indication
     Route: 065
  19. LOPERAMIDE [Concomitant]
     Active Substance: LOPERAMIDE
     Indication: Product used for unknown indication
     Route: 065
  20. VITAMINS [Concomitant]
     Active Substance: VITAMINS
     Indication: Product used for unknown indication
     Route: 065
  21. BIFIDOBACTERIUM ANIMALIS LACTIS [Concomitant]
     Active Substance: BIFIDOBACTERIUM ANIMALIS LACTIS
     Indication: Product used for unknown indication
     Route: 065
  22. VITAMIN C [Concomitant]
     Active Substance: ASCORBIC ACID
     Indication: Product used for unknown indication
     Route: 065
  23. CANNABIS SATIVA SUBSP. INDICA TOP [Concomitant]
     Active Substance: CANNABIS SATIVA SUBSP. INDICA TOP
     Indication: Product used for unknown indication
     Route: 065
  24. IUD NOS [Concomitant]
     Active Substance: COPPER OR LEVONORGESTREL
     Indication: Product used for unknown indication
  25. CELEXA [Concomitant]
     Active Substance: CITALOPRAM HYDROBROMIDE
     Indication: Product used for unknown indication
     Route: 065
  26. KLONOPIN [Concomitant]
     Active Substance: CLONAZEPAM
     Indication: Product used for unknown indication
     Route: 065
  27. DIPHENHYDRAMINE [Concomitant]
     Active Substance: DIPHENHYDRAMINE
     Indication: Product used for unknown indication
     Route: 065
  28. MOTRIN [Concomitant]
     Active Substance: IBUPROFEN
     Indication: Product used for unknown indication
     Route: 065
  29. VALACYCLOVIR IR [Concomitant]
     Indication: Product used for unknown indication
     Route: 065
  30. NORCO [Concomitant]
     Active Substance: ACETAMINOPHEN\HYDROCODONE BITARTRATE
     Indication: Product used for unknown indication
     Route: 065
  31. ALEVE [Concomitant]
     Active Substance: NAPROXEN SODIUM
     Indication: Product used for unknown indication
     Route: 065
  32. FLOVENT [Concomitant]
     Active Substance: FLUTICASONE PROPIONATE
     Indication: Product used for unknown indication
     Route: 065

REACTIONS (38)
  - Abdominal discomfort [Unknown]
  - Influenza like illness [Unknown]
  - Depressed mood [Unknown]
  - Withdrawal syndrome [Unknown]
  - Memory impairment [Not Recovered/Not Resolved]
  - Abdominal distension [Unknown]
  - Migraine [Unknown]
  - Disturbance in attention [Unknown]
  - Feeling abnormal [Unknown]
  - Feeling hot [Unknown]
  - Lethargy [Unknown]
  - Confusional state [Unknown]
  - Bradyphrenia [Unknown]
  - Bradykinesia [Unknown]
  - Lacrimation increased [Unknown]
  - Sleep disorder [Unknown]
  - Intervertebral disc protrusion [Unknown]
  - Sciatica [Unknown]
  - Gait disturbance [Unknown]
  - Hypokinesia [Unknown]
  - Cognitive disorder [Not Recovered/Not Resolved]
  - Mood swings [Unknown]
  - COVID-19 [Unknown]
  - Malaise [Unknown]
  - Cough [Unknown]
  - Pruritus [Unknown]
  - Fatigue [Unknown]
  - Post herpetic neuralgia [Unknown]
  - Incorrect dose administered [Unknown]
  - Product availability issue [Unknown]
  - Product administration error [Unknown]
  - Product dose omission issue [Unknown]
  - Wrong technique in product usage process [Unknown]
  - Herpes zoster [Recovered/Resolved]
  - Weight increased [Unknown]
  - Diarrhoea [Unknown]
  - Headache [Unknown]
  - Muscle spasms [Unknown]
